FAERS Safety Report 7940700-X (Version None)
Quarter: 2011Q4

REPORT INFORMATION
  Report Type: 
  Country: None (occurrence: None)
  Receive Date: 20111128
  Receipt Date: 20111118
  Transmission Date: 20120403
  Serious: Yes (Other)
  Sender: FDA-Public Use
  Company Number: US-JNJFOC-20111108437

PATIENT
  Sex: Male

DRUGS (8)
  1. DURAGESIC-100 [Suspect]
     Route: 062
     Dates: start: 20110101
  2. LYRICA [Concomitant]
     Indication: ARTHROPATHY
     Route: 048
  3. POTASSIUM ACETATE [Concomitant]
     Indication: ELECTROLYTE SUBSTITUTION THERAPY
     Route: 048
  4. DURAGESIC-100 [Suspect]
     Route: 062
     Dates: start: 20110101
  5. PROAIR HFA [Concomitant]
     Indication: LUNG DISORDER
     Route: 065
  6. MOTRIN [Concomitant]
     Route: 065
  7. DURAGESIC-100 [Suspect]
     Indication: NEUROPATHY PERIPHERAL
     Route: 062
     Dates: start: 20110101, end: 20110101
  8. DURAGESIC-100 [Suspect]
     Indication: SJOGREN'S SYNDROME
     Route: 062
     Dates: start: 20110101, end: 20110101

REACTIONS (3)
  - DEPRESSED MOOD [None]
  - FEELING ABNORMAL [None]
  - WITHDRAWAL SYNDROME [None]
